FAERS Safety Report 9265727 (Version 4)
Quarter: 2013Q2

REPORT INFORMATION
  Report Type: Report from Study
  Country: GB (occurrence: GB)
  Receive Date: 20130501
  Receipt Date: 20130610
  Transmission Date: 20140414
  Serious: Yes (Hospitalization)
  Sender: FDA-Public Use
  Company Number: GB-GLAXOSMITHKLINE-B0838748C

PATIENT
  Age: 77 Year
  Sex: Male
  Weight: 73.3 kg

DRUGS (18)
  1. OFATUMUMAB [Suspect]
     Indication: CHRONIC LYMPHOCYTIC LEUKAEMIA
     Dosage: 1000MG FOUR TIMES PER WEEK
     Route: 042
     Dates: start: 20120912
  2. BENDAMUSTINE [Suspect]
     Indication: CHRONIC LYMPHOCYTIC LEUKAEMIA
     Dosage: 130MG FOUR TIMES PER WEEK
     Route: 042
     Dates: start: 20120913
  3. PARACETAMOL [Concomitant]
     Indication: CHRONIC LYMPHOCYTIC LEUKAEMIA
     Route: 048
     Dates: start: 20130410, end: 20130410
  4. CHLORPHENIRAMINE [Concomitant]
     Indication: CHRONIC LYMPHOCYTIC LEUKAEMIA
     Route: 042
     Dates: start: 20130410, end: 20130410
  5. PREDNISOLONE [Concomitant]
     Indication: CHRONIC LYMPHOCYTIC LEUKAEMIA
     Route: 048
     Dates: start: 20130410, end: 20130412
  6. METOCLOPRAMIDE [Concomitant]
     Indication: CHRONIC LYMPHOCYTIC LEUKAEMIA
     Route: 048
     Dates: start: 20130409, end: 20130412
  7. ACICLOVIR [Concomitant]
     Indication: CHRONIC LYMPHOCYTIC LEUKAEMIA
     Route: 048
     Dates: start: 20130412
  8. G-CSF [Concomitant]
     Indication: CHRONIC LYMPHOCYTIC LEUKAEMIA
     Route: 058
     Dates: start: 20130422
  9. RANITIDINE [Concomitant]
     Indication: ILL-DEFINED DISORDER
     Dosage: 150MG TWICE PER DAY
  10. CANDESARTAN [Concomitant]
     Indication: HYPERTENSION
     Dosage: 20MG PER DAY
  11. CIPROFIBRATE [Concomitant]
     Indication: HYPERURICAEMIA
     Dosage: 100MG PER DAY
     Route: 048
  12. SOTALOL [Concomitant]
     Indication: ARRHYTHMIA
     Dosage: 80MG PER DAY
  13. BUPRENORPHINE [Concomitant]
     Indication: PAIN
  14. SIMVASTATIN [Concomitant]
     Indication: HYPERCHOLESTEROLAEMIA
  15. ISOSORBIDE MONONITRATE [Concomitant]
     Indication: ANGINA PECTORIS
     Dosage: 25MG PER DAY
  16. SALBUTAMOL [Concomitant]
     Dosage: 25MG THREE TIMES PER DAY
     Route: 055
     Dates: start: 20130422
  17. ENOXAPARIN [Concomitant]
     Indication: THROMBOSIS PROPHYLAXIS
     Dosage: 40MG PER DAY
     Route: 058
     Dates: start: 20130423
  18. CYCLIZINE [Concomitant]
     Indication: VOMITING
     Dosage: 50MG AS REQUIRED
     Route: 042
     Dates: start: 20120423

REACTIONS (1)
  - Neutropenic sepsis [Recovered/Resolved with Sequelae]
